FAERS Safety Report 4783679-4 (Version None)
Quarter: 2005Q3

REPORT INFORMATION
  Report Type: 
  Country: None (occurrence: None)
  Receive Date: 20050927
  Receipt Date: 20050518
  Transmission Date: 20060218
  Serious: No
  Sender: FDA-Public Use
  Company Number: USA050598479

PATIENT
  Age: 44 Year
  Sex: Female

DRUGS (5)
  1. STRATTERA [Suspect]
     Dosage: 50 MG DAY
     Dates: end: 20050517
  2. WELLBUTRIN [Concomitant]
  3. SOMA [Concomitant]
  4. VICODIN [Concomitant]
  5. DARVOCET [Concomitant]

REACTIONS (3)
  - FATIGUE [None]
  - NASOPHARYNGITIS [None]
  - VIRAL INFECTION [None]
